FAERS Safety Report 10921197 (Version 1)
Quarter: 2015Q1

REPORT INFORMATION
  Report Type: Spontaneous
  Country: JP (occurrence: None)
  Receive Date: 20150312
  Receipt Date: 20150312
  Transmission Date: 20150721
  Serious: Yes (Other)
  Sender: FDA-Public Use
  Company Number: 2015FE00610

PATIENT
  Age: 76 Year
  Sex: Male
  Weight: 57 kg

DRUGS (7)
  1. MAGNESIUM OXIDE HEAVY [Concomitant]
     Active Substance: MAGNESIUM OXIDE
  2. CLEANAL (FUDOSTEINE) [Concomitant]
  3. ALVESCO (CICLESONIDE) [Concomitant]
  4. GONAX (DEGARELIX) POWDER AND SOLVENT FOR SOLUTION FOR INJECTION, 80MG [Suspect]
     Active Substance: DEGARELIX
     Indication: PROSTATE CANCER
     Dosage: SINGLE
     Route: 058
     Dates: start: 20140130, end: 20140130
  5. MAINHEART (BISOPROLOL FUMARATE) [Concomitant]
  6. SPIRIVA (TIOTROPIUM BROMIDE) [Concomitant]
  7. WATER FOR INJECTION [Concomitant]
     Active Substance: WATER

REACTIONS (4)
  - Erythema [None]
  - Rash pruritic [None]
  - Rash [None]
  - Skin discolouration [None]

NARRATIVE: CASE EVENT DATE: 20140220
